FAERS Safety Report 7148919-5 (Version None)
Quarter: 2010Q4

REPORT INFORMATION
  Report Type: 
  Country: None (occurrence: None)
  Receive Date: 20101209
  Receipt Date: 20101203
  Transmission Date: 20110411
  Serious: Yes (Other)
  Sender: FDA-Public Use
  Company Number: A0887114A

PATIENT
  Age: 51 Year
  Sex: Female
  Weight: 51.8 kg

DRUGS (6)
  1. ADVAIR [Suspect]
     Indication: ASTHMA
     Dosage: 1PUFF TWICE PER DAY
     Route: 055
     Dates: start: 20051001
  2. SINGULAIR [Concomitant]
  3. SPIRIVA [Concomitant]
  4. CELEBREX [Concomitant]
  5. LORAZEPAM [Concomitant]
  6. CALCIUM (VITAMIN) [Concomitant]

REACTIONS (7)
  - ASTHMA [None]
  - BRONCHITIS [None]
  - DRUG INEFFECTIVE [None]
  - DYSPNOEA [None]
  - MALAISE [None]
  - PRODUCT QUALITY ISSUE [None]
  - WHEEZING [None]
